FAERS Safety Report 11062141 (Version 1)
Quarter: 2015Q2

REPORT INFORMATION
  Report Type: Spontaneous
  Country: ES (occurrence: None)
  Receive Date: 20150422
  Receipt Date: 20150422
  Transmission Date: 20150821
  Serious: Yes (Hospitalization)
  Sender: FDA-Public Use
  Company Number: NSR_02046_2015

PATIENT
  Age: 35 Year
  Sex: Male

DRUGS (4)
  1. HYDROALTESONE [Concomitant]
  2. ALLOPURINOL (ALLOPURINOL) [Suspect]
     Active Substance: ALLOPURINOL
     Indication: HYPERURICAEMIA
     Dosage: DF
  3. L-TYROSINE [Concomitant]
  4. TESTOSTERONE. [Concomitant]
     Active Substance: TESTOSTERONE

REACTIONS (1)
  - Drug reaction with eosinophilia and systemic symptoms [None]
